FAERS Safety Report 18102520 (Version 1)
Quarter: 2020Q3

REPORT INFORMATION
  Report Type: Spontaneous
  Country: US (occurrence: US)
  Receive Date: 20200803
  Receipt Date: 20200803
  Transmission Date: 20201103
  Serious: Yes (Hospitalization)
  Sender: FDA-Public Use
  Company Number: US-STRIDES ARCOLAB LIMITED-2019SP006566

PATIENT
  Age: 57 Year
  Sex: Male

DRUGS (12)
  1. PREDNISOLONE. [Suspect]
     Active Substance: PREDNISOLONE
     Dosage: 12.5MG DAILY
     Route: 065
  2. MYCOPHENOLATE MOFETIL. [Suspect]
     Active Substance: MYCOPHENOLATE MOFETIL
     Indication: IMMUNOSUPPRESSION
     Dosage: 500 MG, BID
     Route: 065
  3. MYCOPHENOLATE MOFETIL. [Suspect]
     Active Substance: MYCOPHENOLATE MOFETIL
     Dosage: 250 MG, BID
     Route: 065
  4. MOXIFLOXACIN. [Concomitant]
     Active Substance: MOXIFLOXACIN
     Indication: TUBERCULOSIS
     Dosage: UNK
     Route: 065
  5. RIFABUTIN. [Concomitant]
     Active Substance: RIFABUTIN
     Indication: TUBERCULOSIS
     Dosage: UNK
     Route: 065
  6. THYMOGLOBULIN [Suspect]
     Active Substance: LAPINE T-LYMPHOCYTE IMMUNE GLOBULIN
     Indication: IMMUNOSUPPRESSION
     Dosage: FIVE DOSES OF 1.5 MG/KG EACH
     Route: 065
  7. ISONIAZID. [Concomitant]
     Active Substance: ISONIAZID
     Indication: TUBERCULOSIS
     Dosage: UNK
     Route: 065
  8. ETHAMBUTOL [Concomitant]
     Active Substance: ETHAMBUTOL HYDROCHLORIDE
     Indication: TUBERCULOSIS
     Dosage: UNK
     Route: 065
  9. PREDNISOLONE. [Suspect]
     Active Substance: PREDNISOLONE
     Indication: IMMUNOSUPPRESSION
     Dosage: 20 MG PER DAY
     Route: 065
  10. TACROLIMUS. [Suspect]
     Active Substance: TACROLIMUS
     Indication: IMMUNOSUPPRESSION
     Dosage: UNK, SERUM TROUGH LEVEL TARGET 10?15 NG/ML
     Route: 065
  11. TACROLIMUS. [Suspect]
     Active Substance: TACROLIMUS
     Dosage: 1 MG, BID
     Route: 065
  12. THYMOGLOBULIN [Suspect]
     Active Substance: LAPINE T-LYMPHOCYTE IMMUNE GLOBULIN
     Dosage: 0.5 MG/KG, SINGLE
     Route: 042

REACTIONS (7)
  - Pyrexia [Recovered/Resolved]
  - Leukopenia [Recovered/Resolved]
  - Chills [Recovered/Resolved]
  - Adenovirus infection [Recovered/Resolved]
  - Neutropenia [Recovered/Resolved]
  - Anaemia [Recovered/Resolved]
  - Off label use [Unknown]
